FAERS Safety Report 8591925-4 (Version None)
Quarter: 2012Q3

REPORT INFORMATION
  Report Type: 
  Country: None (occurrence: None)
  Receive Date: 20120814
  Receipt Date: 20120809
  Transmission Date: 20120928
  Serious: Yes (Hospitalization, Other)
  Sender: FDA-Public Use
  Company Number: PK-GENZYME-FLUD-1001541

PATIENT
  Age: 40 Year
  Sex: Female

DRUGS (1)
  1. FLUDARA [Suspect]
     Indication: CHRONIC LYMPHOCYTIC LEUKAEMIA
     Dosage: 53.4MG/28DAY
     Route: 042
     Dates: start: 20120701, end: 20120701

REACTIONS (3)
  - RENAL FAILURE [None]
  - TUMOUR LYSIS SYNDROME [None]
  - DYSPNOEA [None]
